FAERS Safety Report 8086071-2 (Version None)
Quarter: 2012Q1

REPORT INFORMATION
  Report Type: 
  Country: None (occurrence: None)
  Receive Date: 20120128
  Receipt Date: 20110609
  Transmission Date: 20120608
  Serious: Yes (Other)
  Sender: FDA-Public Use
  Company Number: US-ABBOTT-11P-163-0731727-00

PATIENT
  Sex: Female
  Weight: 57.658 kg

DRUGS (3)
  1. ENTOCORT EC [Concomitant]
     Indication: PRODUCT USED FOR UNKNOWN INDICATION
  2. PENTASA [Concomitant]
     Indication: PRODUCT USED FOR UNKNOWN INDICATION
  3. HUMIRA [Suspect]
     Indication: CROHN'S DISEASE
     Route: 058
     Dates: start: 20110420

REACTIONS (5)
  - NAUSEA [None]
  - ABDOMINAL PAIN [None]
  - CROHN'S DISEASE [None]
  - VOMITING [None]
  - WEIGHT DECREASED [None]
